FAERS Safety Report 6206394-9 (Version None)
Quarter: 2009Q2

REPORT INFORMATION
  Report Type: 
  Country: None (occurrence: None)
  Receive Date: 20090528
  Receipt Date: 20090520
  Transmission Date: 20091009
  Serious: Yes (Hospitalization)
  Sender: FDA-Public Use
  Company Number: IT-BAXTER-2009BH005464

PATIENT
  Age: 65 Year
  Sex: Female

DRUGS (12)
  1. GAMMAGARD LIQUID [Suspect]
     Indication: MYASTHENIA GRAVIS
     Route: 042
     Dates: start: 20090323, end: 20090327
  2. GAMMAGARD LIQUID [Suspect]
     Indication: OFF LABEL USE
     Route: 042
     Dates: start: 20090323, end: 20090327
  3. DELTACORTENE [Concomitant]
  4. ALDACTAZIDE [Concomitant]
  5. LASIX [Concomitant]
  6. ALMARYTM [Concomitant]
  7. ARIMIDEX [Concomitant]
  8. TRIATEC [Concomitant]
  9. SINGULAIR [Concomitant]
  10. ASACOL [Concomitant]
  11. PREGABALIN [Concomitant]
  12. LAROXYL [Concomitant]

REACTIONS (4)
  - ARTHRALGIA [None]
  - FIBRIN D DIMER INCREASED [None]
  - PAIN IN EXTREMITY [None]
  - VENOUS THROMBOSIS [None]
